FAERS Safety Report 15349506 (Version 1)
Quarter: 2018Q3

REPORT INFORMATION
  Report Type: Spontaneous
  Country: JP (occurrence: JP)
  Receive Date: 20180904
  Receipt Date: 20180904
  Transmission Date: 20181010
  Serious: Yes (Hospitalization, Other)
  Sender: FDA-Public Use
  Company Number: JP-ELI_LILLY_AND_COMPANY-JP201808016142

PATIENT
  Age: 55 Year
  Sex: Male

DRUGS (3)
  1. ERBITUX [Suspect]
     Active Substance: CETUXIMAB
     Dosage: 445 MG, UNKNOWN
     Route: 041
     Dates: start: 201804, end: 20180809
  2. ERBITUX [Suspect]
     Active Substance: CETUXIMAB
     Indication: COLON CANCER
     Dosage: 712 MG, UNKNOWN
     Route: 041
     Dates: start: 20180329, end: 20180329
  3. TAS 102 [Suspect]
     Active Substance: TIPIRACIL HYDROCHLORIDE\TRIFLURIDINE
     Indication: COLON CANCER
     Dosage: 120 MG, UNKNOWN
     Route: 048
     Dates: start: 20180329, end: 20180807

REACTIONS (5)
  - Pyelonephritis acute [Unknown]
  - C-reactive protein increased [Recovering/Resolving]
  - Neutrophil count decreased [Unknown]
  - Urinary tract infection [Recovered/Resolved]
  - Off label use [Unknown]

NARRATIVE: CASE EVENT DATE: 2018
